FAERS Safety Report 16098510 (Version 2)
Quarter: 2019Q1

REPORT INFORMATION
  Report Type: Spontaneous
  Country: US (occurrence: US)
  Receive Date: 20190321
  Receipt Date: 20190326
  Transmission Date: 20190418
  Serious: No
  Sender: FDA-Public Use
  Company Number: US-DSJP-DSU-2017-148972

PATIENT

DRUGS (1)
  1. BENICAR [Suspect]
     Active Substance: OLMESARTAN MEDOXOMIL
     Indication: HYPERTENSION
     Dosage: 20 MG, QD
     Route: 048
     Dates: start: 2006, end: 20100304

REACTIONS (5)
  - Dizziness [Recovering/Resolving]
  - Sprue-like enteropathy [Recovered/Resolved]
  - Gastrooesophageal reflux disease [Recovered/Resolved]
  - Haematochezia [Recovered/Resolved]
  - Biliary dyskinesia [Unknown]

NARRATIVE: CASE EVENT DATE: 20061113
